FAERS Safety Report 13614229 (Version 1)
Quarter: 2017Q2

REPORT INFORMATION
  Report Type: Spontaneous
  Country: JP (occurrence: JP)
  Receive Date: 20170606
  Receipt Date: 20170606
  Transmission Date: 20170830
  Serious: Yes (Other)
  Sender: FDA-Public Use
  Company Number: JP-EMD SERONO-8160133

PATIENT
  Age: 37 Year
  Sex: Female

DRUGS (4)
  1. CLOMID [Concomitant]
     Active Substance: CLOMIPHENE CITRATE
     Indication: OVULATION INDUCTION
     Route: 048
     Dates: start: 20160305, end: 20160309
  2. GONAL-F RFF [Suspect]
     Active Substance: FOLLITROPIN
     Indication: OVULATION INDUCTION
     Route: 058
     Dates: start: 20160307, end: 20160313
  3. GONADOTROPIN [Concomitant]
     Active Substance: CHORIOGONADOTROPIN ALFA
     Indication: OVULATION INDUCTION
     Dosage: DOSE: 10000 (UNSPECIFIED UNITS)
     Route: 030
     Dates: start: 20160314, end: 20160314
  4. SUPRECUR [Concomitant]
     Active Substance: BUSERELIN
     Indication: OVULATION INDUCTION
     Dosage: DOSE: 600 (UNSPECIFIED UNITS)
     Route: 045
     Dates: start: 20160314, end: 20160314

REACTIONS (2)
  - Abortion [Recovered/Resolved]
  - Multiple pregnancy [Recovered/Resolved]

NARRATIVE: CASE EVENT DATE: 201606
